FAERS Safety Report 17447331 (Version 1)
Quarter: 2020Q1

REPORT INFORMATION
  Report Type: Spontaneous
  Country: US (occurrence: US)
  Receive Date: 20200221
  Receipt Date: 20200221
  Transmission Date: 20200409
  Serious: No
  Sender: FDA-Public Use
  Company Number: US-AMNEAL PHARMACEUTICALS-2020-AMRX-00016

PATIENT
  Sex: Female
  Weight: 58 kg

DRUGS (3)
  1. OXAPROZIN. [Suspect]
     Active Substance: OXAPROZIN
     Indication: SCOLIOSIS
  2. OXAPROZIN. [Suspect]
     Active Substance: OXAPROZIN
     Indication: OSTEOARTHRITIS
  3. OXAPROZIN. [Suspect]
     Active Substance: OXAPROZIN
     Indication: RHEUMATOID ARTHRITIS
     Dosage: 600 MILLIGRAM, BID
     Route: 048

REACTIONS (4)
  - Condition aggravated [Unknown]
  - Drug ineffective [Unknown]
  - Product substitution issue [Unknown]
  - Body height decreased [Unknown]
